FAERS Safety Report 7632097-X (Version None)
Quarter: 2011Q3

REPORT INFORMATION
  Report Type: 
  Country: None (occurrence: None)
  Receive Date: 20110725
  Receipt Date: 20110725
  Transmission Date: 20111222
  Serious: No
  Sender: FDA-Public Use
  Company Number: None

PATIENT
  Age: 66 Year
  Sex: Female
  Weight: 62.595 kg

DRUGS (1)
  1. BONIVA [Suspect]
     Indication: OSTEOPOROSIS
     Dates: start: 20101021, end: 20110719

REACTIONS (5)
  - ABDOMINAL DISCOMFORT [None]
  - FATIGUE [None]
  - CHILLS [None]
  - DIZZINESS [None]
  - ASTHENIA [None]
